FAERS Safety Report 4387254-5 (Version None)
Quarter: 2004Q2

REPORT INFORMATION
  Report Type: 
  Country: None (occurrence: None)
  Receive Date: 20040630
  Receipt Date: 20040330
  Transmission Date: 20050107
  Serious: No
  Sender: FDA-Public Use
  Company Number: US-GLAXOSMITHKLINE-A0505138A

PATIENT
  Age: 48 Year
  Sex: Female

DRUGS (6)
  1. ADVAIR HFA [Suspect]
     Indication: ASTHMA
     Route: 055
     Dates: start: 20010301
  2. SINGULAIR [Concomitant]
  3. CLARITIN [Concomitant]
  4. LEVAQUIN [Concomitant]
  5. ALBUTEROL [Concomitant]
  6. PREDNISONE [Concomitant]

REACTIONS (3)
  - ASTHMA [None]
  - DYSPNOEA [None]
  - LUNG INFECTION [None]
